FAERS Safety Report 17452318 (Version 1)
Quarter: 2020Q1

REPORT INFORMATION
  Report Type: Spontaneous
  Country: US (occurrence: US)
  Receive Date: 20200224
  Receipt Date: 20200224
  Transmission Date: 20200409
  Serious: No
  Sender: FDA-Public Use
  Company Number: US-GE HEALTHCARE LIFE SCIENCES-2020CSU000664

PATIENT

DRUGS (2)
  1. ADREVIEW [Suspect]
     Active Substance: IOBENGUANE I-123
     Indication: DIAGNOSTIC PROCEDURE
     Dosage: UNK UNK, SINGLE
     Route: 065
     Dates: start: 20200205, end: 20200205
  2. ADREVIEW [Suspect]
     Active Substance: IOBENGUANE I-123
     Indication: PRODUCT USED FOR UNKNOWN INDICATION

REACTIONS (2)
  - Radioisotope scan abnormal [Recovered/Resolved]
  - No adverse event [Recovered/Resolved]

NARRATIVE: CASE EVENT DATE: 20200205
